FAERS Safety Report 14166965 (Version 1)
Quarter: 2017Q4

REPORT INFORMATION
  Report Type: Spontaneous
  Country: US (occurrence: US)
  Receive Date: 20171107
  Receipt Date: 20171107
  Transmission Date: 20180321
  Serious: No
  Sender: FDA-Public Use
  Company Number: US-BAYER-2017-201991

PATIENT
  Sex: Male

DRUGS (1)
  1. CLARITIN LIQUI-GELS [Suspect]
     Active Substance: LORATADINE
     Indication: ANTIALLERGIC THERAPY
     Dosage: UNK
     Route: 048

REACTIONS (5)
  - Drug administration error [Unknown]
  - Asthenia [Unknown]
  - Product use in unapproved indication [Unknown]
  - Off label use [Unknown]
  - Somnolence [Unknown]
